FAERS Safety Report 8220293-2 (Version None)
Quarter: 2012Q1

REPORT INFORMATION
  Report Type: 
  Country: None (occurrence: None)
  Receive Date: 20120320
  Receipt Date: 20120312
  Transmission Date: 20120608
  Serious: No
  Sender: FDA-Public Use
  Company Number: US-PFIZER INC-2012023029

PATIENT
  Sex: Female

DRUGS (2)
  1. EPIPEN [Suspect]
  2. EPIPEN [Suspect]

REACTIONS (4)
  - TREMOR [None]
  - CYANOSIS [None]
  - INJURY ASSOCIATED WITH DEVICE [None]
  - PERIPHERAL COLDNESS [None]
